FAERS Safety Report 6003588-2 (Version None)
Quarter: 2008Q4

REPORT INFORMATION
  Report Type: 
  Country: None (occurrence: None)
  Receive Date: 20081212
  Receipt Date: 20081212
  Transmission Date: 20090506
  Serious: Yes (Hospitalization)
  Sender: FDA-Public Use
  Company Number: None

PATIENT
  Age: 62 Year
  Sex: Male
  Weight: 86 kg

DRUGS (2)
  1. ERLOTINIB 150MG GENETECH [Suspect]
     Indication: NON-SMALL CELL LUNG CANCER
     Dosage: 150MG, ORALLY QD
     Route: 048
     Dates: start: 20081007, end: 20081018
  2. DASATINIB 140MG, BRISTOL-MYERS SQUIBB [Suspect]
     Indication: NON-SMALL CELL LUNG CANCER
     Dosage: 140MG, ORALLY QD
     Route: 048
     Dates: start: 20081015, end: 20081018

REACTIONS (1)
  - PYREXIA [None]
